FAERS Safety Report 6875057-9 (Version None)
Quarter: 2010Q3

REPORT INFORMATION
  Report Type: 
  Country: None (occurrence: None)
  Receive Date: 20100727
  Receipt Date: 20091210
  Transmission Date: 20110219
  Serious: No
  Sender: FDA-Public Use
  Company Number: US-MYLANLABS-2009S1021423

PATIENT

DRUGS (1)
  1. GLIPIZIDE [Suspect]

REACTIONS (1)
  - DYSGEUSIA [None]
